FAERS Safety Report 6097822-0 (Version None)
Quarter: 2009Q1

REPORT INFORMATION
  Report Type: 
  Country: None (occurrence: None)
  Receive Date: 20090227
  Receipt Date: 20090218
  Transmission Date: 20090719
  Serious: Yes (Hospitalization)
  Sender: FDA-Public Use
  Company Number: FR-WYE-H08294209

PATIENT
  Sex: Female

DRUGS (2)
  1. EUPANTOL [Suspect]
     Route: 048
  2. IMUREL [Suspect]
     Route: 048
     Dates: start: 20050628, end: 20071101

REACTIONS (1)
  - GINGIVAL CANCER [None]
